FAERS Safety Report 25829174 (Version 6)
Quarter: 2025Q4

REPORT INFORMATION
  Report Type: Other
  Country: US (occurrence: US)
  Receive Date: 20250922
  Receipt Date: 20251229
  Transmission Date: 20260117
  Serious: Yes (Hospitalization)
  Sender: TRAVERE THERAPEUTICS
  Company Number: US-TRAVERE-2025TVT01353

PATIENT
  Age: 71 Year
  Sex: Male

DRUGS (19)
  1. FILSPARI [Suspect]
     Active Substance: SPARSENTAN
     Indication: IgA nephropathy
     Route: 048
     Dates: start: 20250325
  2. FILSPARI [Suspect]
     Active Substance: SPARSENTAN
     Route: 048
     Dates: start: 20250425
  3. FARXIGA [Suspect]
     Active Substance: DAPAGLIFLOZIN PROPANEDIOL
     Indication: Product used for unknown indication
  4. ZYLOPRIM [Concomitant]
     Active Substance: ALLOPURINOL
  5. Sarna [Concomitant]
  6. CARVEDILOL [Concomitant]
     Active Substance: CARVEDILOL
  7. VITAMIN D3 [Concomitant]
     Active Substance: CHOLECALCIFEROL
  8. TIAZAC [Concomitant]
     Active Substance: DILTIAZEM HYDROCHLORIDE
  9. PEPCID [Concomitant]
     Active Substance: FAMOTIDINE
  10. FLONASE [Concomitant]
     Active Substance: FLUTICASONE PROPIONATE
  11. LASIX [Concomitant]
     Active Substance: FUROSEMIDE
  12. NEURONTIN [Concomitant]
     Active Substance: GABAPENTIN
  13. MELATONIN [Concomitant]
     Active Substance: MELATONIN
  14. SIMVASTATIN [Concomitant]
     Active Substance: SIMVASTATIN
  15. ZOCOR [Concomitant]
     Active Substance: SIMVASTATIN
  16. TIRZEPATIDE [Concomitant]
     Active Substance: TIRZEPATIDE
  17. VALACYCLOVIR [Concomitant]
     Active Substance: VALACYCLOVIR HYDROCHLORIDE
  18. SEMAGLUTIDE [Concomitant]
     Active Substance: SEMAGLUTIDE
  19. DAPAGLIFLOZIN [Concomitant]
     Active Substance: DAPAGLIFLOZIN

REACTIONS (6)
  - Hyperkalaemia [None]
  - Acute kidney injury [Unknown]
  - Herpes zoster [Unknown]
  - Weight decreased [Unknown]
  - Diarrhoea [Unknown]
  - Blood creatinine increased [Unknown]

NARRATIVE: CASE EVENT DATE: 20250601
